FAERS Safety Report 10066147 (Version 3)
Quarter: 2014Q3

REPORT INFORMATION
  Report Type: Spontaneous
  Country: US (occurrence: US)
  Receive Date: 20140408
  Receipt Date: 20140916
  Transmission Date: 20150326
  Serious: No
  Sender: FDA-Public Use
  Company Number: US-PFIZER INC-2014095843

PATIENT
  Age: 81 Year
  Sex: Female
  Weight: 78.01 kg

DRUGS (2)
  1. SUTENT [Suspect]
     Active Substance: SUNITINIB MALATE
     Indication: RENAL CANCER
     Dosage: 37.5 MG, 1X/DAY
     Route: 048
     Dates: start: 2013
  2. SUTENT [Suspect]
     Active Substance: SUNITINIB MALATE
     Dosage: 37.5 MG, CYCLIC, 1X/DAY, ONE WEEK AND THEN ONE WEEK OFF WASHOUT PHASE
     Route: 048

REACTIONS (2)
  - Diarrhoea [Unknown]
  - Blood pressure increased [Not Recovered/Not Resolved]
